FAERS Safety Report 7562624-2 (Version None)
Quarter: 2011Q2

REPORT INFORMATION
  Report Type: 
  Country: None (occurrence: None)
  Receive Date: 20110621
  Receipt Date: 20110621
  Transmission Date: 20111010
  Serious: No
  Sender: FDA-Public Use
  Company Number: None

PATIENT
  Age: 15 Year
  Sex: Male
  Weight: 40.3701 kg

DRUGS (1)
  1. ZIPRASIDONE HYDROCHLORIDE (GEODON) [Suspect]
     Indication: OPPOSITIONAL DEFIANT DISORDER
     Dates: start: 20110113, end: 20110113

REACTIONS (4)
  - SYNCOPE [None]
  - ELECTROCARDIOGRAM QT PROLONGED [None]
  - DELAYED PUBERTY [None]
  - DRUG ABUSE [None]
